FAERS Safety Report 19294751 (Version 2)
Quarter: 2021Q2

REPORT INFORMATION
  Report Type: Report from Study
  Country: KR (occurrence: KR)
  Receive Date: 20210524
  Receipt Date: 20210617
  Transmission Date: 20210717
  Serious: Yes (Hospitalization)
  Sender: FDA-Public Use
  Company Number: KR-EISAI MEDICAL RESEARCH-EC-2021-092901

PATIENT
  Age: 65 Year
  Sex: Female
  Weight: 47 kg

DRUGS (14)
  1. LENVIMA [Suspect]
     Active Substance: LENVATINIB
     Indication: THYROID CANCER
     Route: 048
     Dates: start: 20200821, end: 20200831
  2. TRIDOL [Concomitant]
     Active Substance: TRAMADOL HYDROCHLORIDE
     Dosage: 2 AMPULES 50MG/ML
     Route: 030
     Dates: start: 20200821, end: 20200902
  3. LENVIMA [Suspect]
     Active Substance: LENVATINIB
     Route: 048
     Dates: start: 20201102, end: 20210104
  4. TARGIN PR [Concomitant]
     Dosage: 40/20MG
     Route: 048
     Dates: start: 20200821, end: 20200902
  5. STILLEN [Concomitant]
     Dosage: 3 TABS 40/20MG
     Route: 048
     Dates: start: 20200909, end: 20200925
  6. LENVIMA [Suspect]
     Active Substance: LENVATINIB
     Route: 048
     Dates: start: 20200901, end: 20200921
  7. ESO DUO [Concomitant]
     Dosage: 20/800MG
     Route: 048
  8. ULTRACET [Concomitant]
     Active Substance: ACETAMINOPHEN\TRAMADOL HYDROCHLORIDE
     Dosage: 6 TABS
     Route: 048
     Dates: start: 20200907, end: 20200922
  9. JANUVIA [Concomitant]
     Active Substance: SITAGLIPTIN PHOSPHATE
     Route: 048
  10. IRCODON [Concomitant]
     Active Substance: OXYCODONE HYDROCHLORIDE
     Route: 048
  11. ILSUNG MEGESTROL [Concomitant]
     Dosage: 0.4 OTHER
     Route: 048
  12. NEURONTIN [Concomitant]
     Active Substance: GABAPENTIN
     Route: 048
     Dates: start: 20200821, end: 20201007
  13. TARGIN PR [Concomitant]
     Dosage: 2 TABS 40/20MG
     Route: 048
     Dates: start: 20200909, end: 20200925
  14. MACPERAN [Concomitant]
     Active Substance: METOCLOPRAMIDE HYDROCHLORIDE
     Dosage: 3 TABS
     Route: 048
     Dates: start: 20200823, end: 20200917

REACTIONS (3)
  - Hypertension [Recovered/Resolved]
  - Malignant neoplasm progression [Recovered/Resolved]
  - Femur fracture [Recovered/Resolved]

NARRATIVE: CASE EVENT DATE: 20200901
